FAERS Safety Report 19596901 (Version 10)
Quarter: 2022Q2

REPORT INFORMATION
  Report Type: Spontaneous
  Country: JP (occurrence: JP)
  Receive Date: 20210723
  Receipt Date: 20220502
  Transmission Date: 20220721
  Serious: Yes (Death, Life-Threatening, Hospitalization, Congenital Anomaly, Other)
  Sender: FDA-Public Use
  Company Number: JP-BRISTOL-MYERS SQUIBB COMPANY-BMS-2021-071391

PATIENT
  Age: 73 Year
  Sex: Male
  Weight: 58.7 kg

DRUGS (16)
  1. OPDIVO [Suspect]
     Active Substance: NIVOLUMAB
     Indication: Non-small cell lung cancer recurrent
     Dosage: 360 MILLIGRAM, ONE TIME DOSE
     Route: 041
     Dates: start: 20210630, end: 20210630
  2. OPDIVO [Suspect]
     Active Substance: NIVOLUMAB
     Dosage: 360 MILLIGRAM, ONE TIME DOSE
     Route: 041
     Dates: start: 20210721, end: 20210721
  3. YERVOY [Suspect]
     Active Substance: IPILIMUMAB
     Indication: Non-small cell lung cancer
     Dosage: 50 MILLIGRAM, ONE TIME DOSE
     Route: 041
     Dates: start: 20210630, end: 20210630
  4. YERVOY [Suspect]
     Active Substance: IPILIMUMAB
  5. CARBOPLATIN [Suspect]
     Active Substance: CARBOPLATIN
     Indication: Non-small cell lung cancer
     Dosage: 572 MILLIGRAM
     Route: 041
     Dates: start: 20210630, end: 20210630
  6. CARBOPLATIN [Suspect]
     Active Substance: CARBOPLATIN
     Dosage: 506 MILLIGRAM
     Route: 041
     Dates: start: 20210721, end: 20210721
  7. PACLITAXEL [Suspect]
     Active Substance: PACLITAXEL
     Indication: Non-small cell lung cancer
     Dosage: 315 MILLIGRAM
     Route: 041
     Dates: start: 20210630, end: 20210630
  8. PACLITAXEL [Suspect]
     Active Substance: PACLITAXEL
     Dosage: 236 MILLIGRAM
     Route: 041
     Dates: start: 20210721, end: 20210721
  9. DEXAMETHASONE SODIUM PHOSPHATE [Concomitant]
     Active Substance: DEXAMETHASONE SODIUM PHOSPHATE
     Indication: Prophylaxis
     Dosage: 19.8 MILLIGRAM
     Route: 041
     Dates: start: 20210630
  10. DEXAMETHASONE SODIUM PHOSPHATE [Concomitant]
     Active Substance: DEXAMETHASONE SODIUM PHOSPHATE
  11. ALOXI [Concomitant]
     Active Substance: PALONOSETRON HYDROCHLORIDE
     Indication: Prophylaxis
     Dosage: 0.75 MILLIGRAM
     Route: 041
     Dates: start: 20210630
  12. ALOXI [Concomitant]
     Active Substance: PALONOSETRON HYDROCHLORIDE
  13. FAMOTIDINE [Concomitant]
     Active Substance: FAMOTIDINE
     Indication: Prophylaxis
     Dosage: 20 MILLIGRAM
     Route: 041
     Dates: start: 20210630
  14. FAMOTIDINE [Concomitant]
     Active Substance: FAMOTIDINE
  15. DIPHENHYDRAMINE HYDROCHLORIDE [Concomitant]
     Active Substance: DIPHENHYDRAMINE HYDROCHLORIDE
     Indication: Prophylaxis
     Dosage: 50 MILLIGRAM
     Route: 048
     Dates: start: 20210630
  16. DIPHENHYDRAMINE HYDROCHLORIDE [Concomitant]
     Active Substance: DIPHENHYDRAMINE HYDROCHLORIDE

REACTIONS (9)
  - Oesophagobronchial fistula [Fatal]
  - Malignant neoplasm progression [Fatal]
  - Cardiac arrest [Fatal]
  - Respiratory failure [Fatal]
  - Pneumonia [Fatal]
  - Tracheo-oesophageal fistula [Fatal]
  - Febrile neutropenia [Recovered/Resolved]
  - Pleural effusion [Recovering/Resolving]
  - General physical health deterioration [Fatal]

NARRATIVE: CASE EVENT DATE: 20210708
